FAERS Safety Report 23213927 (Version 1)
Quarter: 2023Q4

REPORT INFORMATION
  Report Type: Spontaneous
  Country: US (occurrence: None)
  Receive Date: 20231121
  Receipt Date: 20231121
  Transmission Date: 20240109
  Serious: Yes (Hospitalization)
  Sender: FDA-Public Use
  Company Number: None

PATIENT
  Age: 68 Year
  Sex: Female
  Weight: 69 kg

DRUGS (3)
  1. KEYTRUDA [Suspect]
     Active Substance: PEMBROLIZUMAB
     Indication: Endometrial cancer recurrent
     Dosage: OTHER FREQUENCY : EVERY THREE WEEKS.;?
     Route: 042
     Dates: start: 20230829, end: 20231010
  2. LENVIMA [Suspect]
     Active Substance: LENVATINIB
     Indication: Endometrial cancer recurrent
     Dosage: FREQUENCY : DAILY;?
     Route: 048
     Dates: start: 20230801, end: 20231106
  3. PACLITAXEL [Concomitant]
     Active Substance: PACLITAXEL

REACTIONS (12)
  - Diarrhoea [None]
  - Decreased activity [None]
  - COVID-19 [None]
  - Cholecystitis acute [None]
  - Bile duct stone [None]
  - Pleural effusion [None]
  - Metastases to peritoneum [None]
  - Cystitis [None]
  - Cystitis radiation [None]
  - Nausea [None]
  - Vomiting [None]
  - Abdominal pain [None]

NARRATIVE: CASE EVENT DATE: 20231117
